FAERS Safety Report 5228719-3 (Version None)
Quarter: 2007Q1

REPORT INFORMATION
  Report Type: 
  Country: None (occurrence: None)
  Receive Date: 20070205
  Receipt Date: 20070123
  Transmission Date: 20070707
  Serious: Yes (Other)
  Sender: FDA-Public Use
  Company Number: PHBS2005CH16841

PATIENT
  Age: 45 Year
  Sex: Male

DRUGS (6)
  1. ZOMETA [Suspect]
     Indication: MULTIPLE MYELOMA
     Dosage: 4 MG EVERY 3-4 WEEKS
     Route: 042
     Dates: start: 20020201
  2. VELCADE [Concomitant]
     Indication: MULTIPLE MYELOMA
     Route: 042
  3. CORTICOSTEROIDS [Concomitant]
     Indication: MULTIPLE MYELOMA
     Route: 065
  4. AREDIA [Suspect]
     Indication: MULTIPLE MYELOMA
     Route: 042
  5. CHEMOTHERAPEUTICS,OTHER [Concomitant]
     Route: 065
  6. HEMATOPOETIC PROGENITOR CELLS HUMAN [Concomitant]
     Dosage: AUTOLOGOUS STEM CELL TRANSPLANT
     Route: 065

REACTIONS (8)
  - BONE DEBRIDEMENT [None]
  - BONE DISORDER [None]
  - BONE TRIMMING [None]
  - DENTAL TREATMENT [None]
  - OSTEONECROSIS [None]
  - PAIN IN JAW [None]
  - SINUS DISORDER [None]
  - TOOTH EXTRACTION [None]
